FAERS Safety Report 7564224-7 (Version None)
Quarter: 2011Q2

REPORT INFORMATION
  Report Type: 
  Country: None (occurrence: None)
  Receive Date: 20110622
  Receipt Date: 20110608
  Transmission Date: 20111010
  Serious: Yes (Other)
  Sender: FDA-Public Use
  Company Number: PHHY2011US50537

PATIENT
  Sex: Male

DRUGS (11)
  1. SPRYCEL [Concomitant]
     Dosage: UNK
  2. RECLAST [Suspect]
     Dosage: 5 MG, UNK
     Route: 042
  3. VICODIN [Concomitant]
     Indication: PAIN
     Dosage: UNK
  4. NEXIUM [Concomitant]
     Dosage: UNK
  5. PREDNISONE [Concomitant]
     Dosage: UNK
  6. PLAQUENIL [Concomitant]
     Dosage: UNK
  7. COLCHICINE [Concomitant]
     Dosage: UNK
  8. ATENOLOL [Concomitant]
     Dosage: UNK
  9. COUMADIN [Concomitant]
     Dosage: UNK
  10. DEJOCSIN [Concomitant]
     Dosage: UNK
  11. PROSCAR [Concomitant]
     Dosage: UNK

REACTIONS (7)
  - PLEURISY [None]
  - CHILLS [None]
  - JOINT SWELLING [None]
  - OEDEMA PERIPHERAL [None]
  - HEADACHE [None]
  - PAIN [None]
  - HYPERHIDROSIS [None]
